FAERS Safety Report 6837291-3 (Version None)
Quarter: 2010Q3

REPORT INFORMATION
  Report Type: 
  Country: None (occurrence: None)
  Receive Date: 20100713
  Receipt Date: 20070508
  Transmission Date: 20110219
  Serious: Yes (Other)
  Sender: FDA-Public Use
  Company Number: US-PFIZER INC-2007037855

PATIENT
  Sex: Male
  Weight: 154.54 kg

DRUGS (4)
  1. CHANTIX [Suspect]
     Indication: SMOKING CESSATION THERAPY
     Dates: start: 20070301, end: 20070501
  2. GLUCOPHAGE [Concomitant]
  3. GLUCOTROL [Concomitant]
  4. LISINOPRIL [Concomitant]

REACTIONS (5)
  - ASTHENIA [None]
  - FEELING HOT [None]
  - HEADACHE [None]
  - NAUSEA [None]
  - VISUAL IMPAIRMENT [None]
